FAERS Safety Report 7336435-7 (Version None)
Quarter: 2011Q1

REPORT INFORMATION
  Report Type: 
  Country: None (occurrence: None)
  Receive Date: 20110307
  Receipt Date: 20110302
  Transmission Date: 20110831
  Serious: Yes (Hospitalization, Other)
  Sender: FDA-Public Use
  Company Number: US-CEPHALON-2011000842

PATIENT
  Sex: Female
  Weight: 59 kg

DRUGS (8)
  1. RITUXAN [Suspect]
     Indication: LYMPHOMA
     Dates: start: 20110112, end: 20110215
  2. VELCADE [Suspect]
     Indication: LYMPHOMA
     Dates: start: 20110112, end: 20110215
  3. ASA [Concomitant]
  4. SYNTHROID [Concomitant]
  5. TREANDA [Suspect]
     Indication: LYMPHOMA
     Route: 042
     Dates: start: 20110112, end: 20110215
  6. PERCOCET [Concomitant]
  7. ZOCAR [Concomitant]
  8. XANAX [Concomitant]

REACTIONS (3)
  - RECTAL ABSCESS [None]
  - ANAEMIA [None]
  - DYSPNOEA [None]
